FAERS Safety Report 17593406 (Version 1)
Quarter: 2020Q1

REPORT INFORMATION
  Report Type: Spontaneous
  Country: US (occurrence: US)
  Receive Date: 20200327
  Receipt Date: 20200327
  Transmission Date: 20200409
  Serious: No
  Sender: FDA-Public Use
  Company Number: US-TOPROL ACQUISITION LLC-2019-TOP-001320

PATIENT
  Age: 53 Year
  Sex: Male

DRUGS (1)
  1. TOPROL XL [Suspect]
     Active Substance: METOPROLOL SUCCINATE
     Indication: PRODUCT USED FOR UNKNOWN INDICATION
     Dosage: 25 MG, BID
     Route: 048

REACTIONS (5)
  - Heart rate irregular [Unknown]
  - Product dose omission [Unknown]
  - Therapeutic product effect incomplete [Unknown]
  - Product quality issue [Unknown]
  - Inappropriate schedule of product administration [Unknown]
